FAERS Safety Report 9631102 (Version 2)
Quarter: 2013Q4

REPORT INFORMATION
  Report Type: Spontaneous
  Country: IL (occurrence: None)
  Receive Date: 20131016
  Receipt Date: 20131030
  Transmission Date: 20140711
  Serious: Yes (Death)
  Sender: FDA-Public Use
  Company Number: UTC-038916

PATIENT
  Age: 22 Year
  Sex: Male

DRUGS (1)
  1. REMODULIN [Suspect]
     Indication: PRODUCT USED FOR UNKNOWN INDICATION
     Route: 058
     Dates: end: 2011

REACTIONS (5)
  - Legionella infection [None]
  - Right ventricular failure [None]
  - Arrhythmia [None]
  - Pulmonary hypertension [None]
  - Hypoxia [None]
